FAERS Safety Report 12218099 (Version 1)
Quarter: 2016Q1

REPORT INFORMATION
  Report Type: Spontaneous
  Country: US (occurrence: None)
  Receive Date: 20160328
  Receipt Date: 20160328
  Transmission Date: 20160526
  Serious: Yes (Life-Threatening, Hospitalization)
  Sender: FDA-Public Use
  Company Number: None

PATIENT
  Age: 27 Year
  Sex: Female
  Weight: 81.65 kg

DRUGS (8)
  1. VITAMIN D [Concomitant]
     Active Substance: CHOLECALCIFEROL
  2. XOPENEX [Concomitant]
     Active Substance: LEVALBUTEROL HYDROCHLORIDE
  3. XOPENEX NEBULIZER [Concomitant]
  4. SALBUTAMOL [Suspect]
     Active Substance: ALBUTEROL
     Dosage: 2 PUFFS OR 1 NEBULIZER
     Route: 055
     Dates: start: 1991, end: 2005
  5. ALBUTEROL. [Suspect]
     Active Substance: ALBUTEROL
     Indication: ASTHMA
     Dosage: 2 PUFFS OR 1 NEBULIZER
     Route: 055
     Dates: start: 1991, end: 2005
  6. ALBUTEROL SULFATE. [Suspect]
     Active Substance: ALBUTEROL SULFATE
     Indication: ASTHMA
     Dosage: 2 PUFFS OR 1 NEBULIZER
     Route: 055
     Dates: start: 1991, end: 2005
  7. SINGULAIR [Concomitant]
     Active Substance: MONTELUKAST SODIUM
  8. ERRIN [Concomitant]
     Active Substance: NORETHINDRONE

REACTIONS (3)
  - Loss of consciousness [None]
  - Heart rate irregular [None]
  - Heart rate increased [None]

NARRATIVE: CASE EVENT DATE: 200502
